FAERS Safety Report 4878886-6 (Version None)
Quarter: 2006Q1

REPORT INFORMATION
  Report Type: 
  Country: None (occurrence: None)
  Receive Date: 20060112
  Receipt Date: 20060106
  Transmission Date: 20060701
  Serious: Yes (Other)
  Sender: FDA-Public Use
  Company Number: 2006PK00097

PATIENT
  Age: 19897 Day
  Sex: Female
  Weight: 70 kg

DRUGS (1)
  1. SEROQUEL [Suspect]
     Indication: SCHIZOPHRENIA
     Route: 048
     Dates: start: 20050921, end: 20051014

REACTIONS (2)
  - LEUKOPENIA [None]
  - NEUTROPENIA [None]
